FAERS Safety Report 16114903 (Version 1)
Quarter: 2019Q1

REPORT INFORMATION
  Report Type: Spontaneous
  Country: FR (occurrence: FR)
  Receive Date: 20190325
  Receipt Date: 20190325
  Transmission Date: 20190418
  Serious: Yes (Hospitalization)
  Sender: FDA-Public Use
  Company Number: FR-PFIZER INC-2019123582

PATIENT
  Age: 58 Year
  Sex: Male
  Weight: 85 kg

DRUGS (10)
  1. ENALAPRIL [Concomitant]
     Active Substance: ENALAPRIL
     Dosage: 10 MG, 1X/DAY
     Route: 048
  2. CODOLIPRANE [Suspect]
     Active Substance: ACETAMINOPHEN\CODEINE PHOSPHATE
     Indication: PAIN
     Dosage: 1 DF, UNK
     Route: 048
     Dates: start: 201901, end: 201901
  3. CELESTENE [BETAMETHASONE ACETATE;DEXAMETHASONE SODIUM PHOSPHATE] [Suspect]
     Active Substance: BETAMETHASONE ACETATE\DEXAMETHASONE SODIUM PHOSPHATE
     Indication: PAIN
     Dosage: UNK
     Route: 048
     Dates: start: 201901, end: 201901
  4. KETOPROFEN. [Suspect]
     Active Substance: KETOPROFEN
     Indication: PAIN
     Dosage: 100 MG, UNK
     Route: 048
     Dates: start: 201901, end: 201901
  5. MONOPROST [Concomitant]
     Active Substance: LATANOPROST
     Dosage: UNK
     Route: 047
  6. KARDEGIC [Concomitant]
     Active Substance: ASPIRIN DL-LYSINE
     Indication: CARDIOVASCULAR EVENT PROPHYLAXIS
     Dosage: 1 DF, 1X/DAY
     Route: 048
  7. HUMIRA [Suspect]
     Active Substance: ADALIMUMAB
     Indication: OSTEOMYELITIS
     Dosage: 1 DF, SINGLE
     Route: 058
     Dates: start: 20190122, end: 20190122
  8. ATORVASTATIN [Concomitant]
     Active Substance: ATORVASTATIN
     Dosage: 10 MG, 1X/DAY
     Route: 048
  9. IBUPROFEN. [Suspect]
     Active Substance: IBUPROFEN
     Indication: PAIN
     Dosage: 1 DF, UNK
     Route: 048
  10. PREDNISONE. [Suspect]
     Active Substance: PREDNISONE
     Indication: PAIN
     Dosage: UNK
     Route: 048
     Dates: start: 201901, end: 201901

REACTIONS (1)
  - Pancreatitis [Recovering/Resolving]

NARRATIVE: CASE EVENT DATE: 20190124
